FAERS Safety Report 7281073-8 (Version None)
Quarter: 2011Q1

REPORT INFORMATION
  Report Type: 
  Country: None (occurrence: None)
  Receive Date: 20110208
  Receipt Date: 20110128
  Transmission Date: 20110831
  Serious: Yes (Hospitalization, Other)
  Sender: FDA-Public Use
  Company Number: US-MERCK-1007USA00207

PATIENT
  Age: 50 Year
  Sex: Female
  Weight: 58 kg

DRUGS (6)
  1. FOSAMAX [Suspect]
     Route: 048
  2. FOSAMAX [Suspect]
     Indication: OSTEOPOROSIS
     Route: 048
     Dates: start: 19950101, end: 20090101
  3. FOSAMAX [Suspect]
     Indication: OSTEOPENIA
     Route: 048
     Dates: start: 19950101, end: 20090101
  4. FOSAMAX [Suspect]
     Route: 048
  5. FOSAMAX PLUS D [Suspect]
     Indication: OSTEOPENIA
     Route: 048
     Dates: start: 20080601
  6. FOSAMAX PLUS D [Suspect]
     Indication: OSTEOPOROSIS
     Route: 048
     Dates: start: 20080601

REACTIONS (34)
  - FRACTURE DELAYED UNION [None]
  - HIATUS HERNIA [None]
  - VAGINAL INFECTION [None]
  - BRONCHITIS [None]
  - BLADDER DISORDER [None]
  - CHOLECYSTECTOMY [None]
  - GASTROINTESTINAL HAEMORRHAGE [None]
  - BONE LESION [None]
  - RENAL CYST [None]
  - DEPRESSION [None]
  - ARTIFICIAL MENOPAUSE [None]
  - OSTEOARTHRITIS [None]
  - LUMBAR RADICULOPATHY [None]
  - ANAEMIA OF CHRONIC DISEASE [None]
  - CONJUNCTIVITIS [None]
  - DIZZINESS [None]
  - COSTOCHONDRITIS [None]
  - SYSTEMIC LUPUS ERYTHEMATOSUS [None]
  - FALL [None]
  - URINARY INCONTINENCE [None]
  - SYNOVIAL CYST [None]
  - CELLULITIS [None]
  - MALLORY-WEISS SYNDROME [None]
  - DEEP VEIN THROMBOSIS [None]
  - ADVERSE DRUG REACTION [None]
  - LUMBAR SPINAL STENOSIS [None]
  - INTERVERTEBRAL DISC DEGENERATION [None]
  - FEMUR FRACTURE [None]
  - APPENDICECTOMY [None]
  - PULMONARY EMBOLISM [None]
  - CROHN'S DISEASE [None]
  - SMALL INTESTINAL STENOSIS [None]
  - RASH PRURITIC [None]
  - FIBROMYALGIA [None]
